FAERS Safety Report 6245471-3 (Version None)
Quarter: 2009Q2

REPORT INFORMATION
  Report Type: 
  Country: None (occurrence: None)
  Receive Date: 20090625
  Receipt Date: 20090615
  Transmission Date: 20091009
  Serious: Yes (Other)
  Sender: FDA-Public Use
  Company Number: PHEH2009US06280

PATIENT
  Sex: Male
  Weight: 83.9 kg

DRUGS (1)
  1. DIOVAN [Suspect]
     Indication: HYPERTENSION
     Dosage: 160 UNK, QD
     Route: 048

REACTIONS (2)
  - ASTHENIA [None]
  - DEPRESSION [None]
